FAERS Safety Report 7381642-0 (Version None)
Quarter: 2011Q1

REPORT INFORMATION
  Report Type: 
  Country: None (occurrence: None)
  Receive Date: 20110329
  Receipt Date: 20101001
  Transmission Date: 20110831
  Serious: Yes (Other)
  Sender: FDA-Public Use
  Company Number: US-BAYER-201025794NA

PATIENT
  Sex: Female
  Weight: 63 kg

DRUGS (8)
  1. OCELLA [Suspect]
     Indication: PRODUCT USED FOR UNKNOWN INDICATION
     Route: 048
  2. ONE A DAY [Concomitant]
  3. YAZ [Suspect]
     Indication: PRODUCT USED FOR UNKNOWN INDICATION
     Route: 048
  4. YASMIN [Suspect]
     Indication: ENDOMETRIOSIS
     Dosage: UNK UNK, QD
     Route: 048
     Dates: start: 20041201, end: 20091001
  5. SYNTHROID [Concomitant]
     Indication: HYPOTHYROIDISM
     Dosage: UNK UNK, QD
     Route: 048
     Dates: start: 19930101
  6. VICODIN [Concomitant]
     Indication: PAIN
  7. PEPCID [Concomitant]
     Indication: DYSPEPSIA
  8. GAS X [Concomitant]

REACTIONS (8)
  - BILIARY COLIC [None]
  - CHOLELITHIASIS [None]
  - DYSPNOEA [None]
  - INJURY [None]
  - BACK PAIN [None]
  - NAUSEA [None]
  - ABDOMINAL PAIN UPPER [None]
  - CHEST PAIN [None]
